FAERS Safety Report 19381251 (Version 1)
Quarter: 2021Q2

REPORT INFORMATION
  Report Type: Spontaneous
  Country: US (occurrence: US)
  Receive Date: 20210604
  Receipt Date: 20210604
  Transmission Date: 20210717
  Serious: Yes (Life-Threatening)
  Sender: FDA-Public Use
  Company Number: None

PATIENT
  Age: 7 Year
  Sex: Male
  Weight: 23.7 kg

DRUGS (2)
  1. GAMUNEX?C [Suspect]
     Active Substance: HUMAN IMMUNOGLOBULIN G
     Indication: IMMUNODEFICIENCY COMMON VARIABLE
     Dosage: ?          OTHER FREQUENCY:EVERY 4 WEEKS;?
     Route: 041
     Dates: start: 20200324
  2. GAMUNEX?C [Suspect]
     Active Substance: HUMAN IMMUNOGLOBULIN G
     Indication: ACUTE LYMPHOCYTIC LEUKAEMIA
     Dosage: ?          OTHER FREQUENCY:EVERY 4 WEEKS;?
     Route: 041
     Dates: start: 20200324

REACTIONS (2)
  - Urticaria [None]
  - Respiratory distress [None]

NARRATIVE: CASE EVENT DATE: 20210604
